FAERS Safety Report 9717694 (Version 1)
Quarter: 2013Q4

REPORT INFORMATION
  Report Type: Spontaneous
  Country: JP (occurrence: JP)
  Receive Date: 20131127
  Receipt Date: 20131127
  Transmission Date: 20140711
  Serious: Yes (Hospitalization, Other)
  Sender: FDA-Public Use
  Company Number: JP-MERCK-1311USA010286

PATIENT
  Sex: Male

DRUGS (4)
  1. ISENTRESS TABLETS 400MG [Suspect]
     Indication: HIV INFECTION
     Dosage: UNK
     Route: 048
  2. TRUVADA [Suspect]
     Indication: HIV INFECTION
     Dosage: UNK
     Route: 048
  3. METHYLPREDNISOLONE SODIUM SUCCINATE [Concomitant]
     Dosage: 0.5 G, QD
  4. BENAMBAX [Concomitant]
     Dosage: UNK

REACTIONS (4)
  - Pneumonia cytomegaloviral [Unknown]
  - Cytomegalovirus chorioretinitis [Recovering/Resolving]
  - Immune reconstitution inflammatory syndrome [Unknown]
  - Endotracheal intubation [Recovered/Resolved]
